FAERS Safety Report 6834379-8 (Version None)
Quarter: 2010Q3

REPORT INFORMATION
  Report Type: 
  Country: None (occurrence: None)
  Receive Date: 20100712
  Receipt Date: 20070606
  Transmission Date: 20110219
  Serious: Yes (Other)
  Sender: FDA-Public Use
  Company Number: US-PFIZER INC-2007023861

PATIENT
  Sex: Female
  Weight: 65.3 kg

DRUGS (2)
  1. CHANTIX [Suspect]
     Indication: EX-TOBACCO USER
     Route: 048
     Dates: start: 20070219, end: 20070329
  2. ANTIDEPRESSANTS [Suspect]
     Indication: DEPRESSION

REACTIONS (2)
  - ADVERSE EVENT [None]
  - DEPRESSION [None]
